FAERS Safety Report 24552222 (Version 4)
Quarter: 2024Q4

REPORT INFORMATION
  Report Type: Report from Study
  Country: GB (occurrence: GB)
  Receive Date: 20241026
  Receipt Date: 20241210
  Transmission Date: 20250114
  Serious: Yes (Hospitalization)
  Sender: ABBVIE
  Company Number: GB-ABBVIE-5976700

PATIENT
  Age: 41 Year
  Sex: Female
  Weight: 110 kg

DRUGS (5)
  1. UPADACITINIB [Suspect]
     Active Substance: UPADACITINIB
     Indication: Colitis ulcerative
     Route: 048
     Dates: start: 20240716, end: 20241002
  2. UPADACITINIB [Suspect]
     Active Substance: UPADACITINIB
     Indication: Colitis ulcerative
     Route: 048
     Dates: start: 20241003, end: 20241008
  3. OMEPRAZOLE [Concomitant]
     Active Substance: OMEPRAZOLE
     Indication: Prophylaxis
     Route: 048
     Dates: start: 20241022, end: 20241116
  4. MEZEVANT [Concomitant]
     Indication: Colitis ulcerative
     Route: 048
     Dates: start: 20230207
  5. SALOFALK [Concomitant]
     Indication: Colitis ulcerative
     Dosage: TIME INTERVAL: AS NECESSARY
     Route: 054
     Dates: start: 20230201

REACTIONS (1)
  - Orbital decompression [Recovered/Resolved]

NARRATIVE: CASE EVENT DATE: 20241022
